FAERS Safety Report 12145613 (Version 1)
Quarter: 2016Q1

REPORT INFORMATION
  Report Type: Spontaneous
  Country: US (occurrence: None)
  Receive Date: 20160303
  Receipt Date: 20160303
  Transmission Date: 20160526
  Serious: No
  Sender: FDA-Public Use
  Company Number: None

PATIENT
  Age: 54 Year
  Sex: Female

DRUGS (1)
  1. TARCEVA [Suspect]
     Active Substance: ERLOTINIB HYDROCHLORIDE
     Dosage: TARCEVA 25MG TABLETS II QD ORAL
     Route: 048
     Dates: start: 20160229, end: 20160301

REACTIONS (5)
  - Skin disorder [None]
  - Rash [None]
  - Dry skin [None]
  - Pruritus [None]
  - Skin exfoliation [None]

NARRATIVE: CASE EVENT DATE: 20160229
